FAERS Safety Report 22091428 (Version 7)
Quarter: 2023Q2

REPORT INFORMATION
  Report Type: Spontaneous
  Country: US (occurrence: US)
  Receive Date: 20230314
  Receipt Date: 20230608
  Transmission Date: 20230722
  Serious: No
  Sender: FDA-Public Use
  Company Number: US-UNITED THERAPEUTICS-UNT-2023-006605

PATIENT
  Sex: Female
  Weight: 73.923 kg

DRUGS (10)
  1. REMODULIN [Suspect]
     Active Substance: TREPROSTINIL
     Indication: Pulmonary arterial hypertension
     Dosage: 0.01804 ?G/KG (SELF-FILLED WITH 1.7ML; PUMP RATE 16MCL/ HOUR), CONTINUING
     Route: 058
  2. REMODULIN [Suspect]
     Active Substance: TREPROSTINIL
     Dosage: 0.02934 ?G/KG, CONTINUING (SELF-FILL CASSETTE WITH 2.4 ML AT A RATE OF 26 MCL PER HOUR)
     Route: 058
  3. REMODULIN [Suspect]
     Active Substance: TREPROSTINIL
     Dosage: 0.03725 ?G/KG (SELF FILL CASSETTE WITH 2.9 ML, AT A PUMP RATE OF 33 MCL/HOUR), CONTINUING
     Route: 058
  4. REMODULIN [Suspect]
     Active Substance: TREPROSTINIL
     Dosage: UNK, CONTINUING
     Route: 058
     Dates: start: 20230224
  5. ORENITRAM [Suspect]
     Active Substance: TREPROSTINIL
     Indication: Pulmonary arterial hypertension
     Dosage: 5 MG, TID (EVERY 8 HRS WITH FOOD)
     Route: 048
  6. ORENITRAM [Suspect]
     Active Substance: TREPROSTINIL
     Dosage: UNK
     Route: 048
     Dates: start: 20210212
  7. ORENITRAM [Suspect]
     Active Substance: TREPROSTINIL
     Indication: Pulmonary arterial hypertension
     Route: 048
  8. OPSUMIT [Concomitant]
     Active Substance: MACITENTAN
     Indication: Product used for unknown indication
     Dosage: UNK
     Route: 065
  9. ADEMPAS [Concomitant]
     Active Substance: RIOCIGUAT
     Indication: Product used for unknown indication
     Dosage: UNK
     Route: 065
  10. VELETRI [Concomitant]
     Active Substance: EPOPROSTENOL
     Indication: Product used for unknown indication
     Dosage: UNK
     Route: 065

REACTIONS (17)
  - Infusion site erythema [Recovering/Resolving]
  - Infusion site pain [Unknown]
  - Device power source issue [Unknown]
  - Infusion site swelling [Recovering/Resolving]
  - Infusion site warmth [Unknown]
  - Device wireless communication issue [Recovered/Resolved]
  - Device wireless communication issue [Recovered/Resolved]
  - Device wireless communication issue [Recovered/Resolved]
  - Device wireless communication issue [Recovered/Resolved]
  - Device difficult to use [Recovered/Resolved]
  - Device wireless communication issue [Not Recovered/Not Resolved]
  - Dermatitis contact [Unknown]
  - Device wireless communication issue [Unknown]
  - Device malfunction [Unknown]
  - Device wireless communication issue [Recovered/Resolved]
  - Device power source issue [Recovered/Resolved]
  - Infusion site reaction [Unknown]
